FAERS Safety Report 7637484-1 (Version None)
Quarter: 2011Q3

REPORT INFORMATION
  Report Type: 
  Country: None (occurrence: None)
  Receive Date: 20110726
  Receipt Date: 20110714
  Transmission Date: 20111222
  Serious: Yes (Hospitalization)
  Sender: FDA-Public Use
  Company Number: PHHY2011US36493

PATIENT
  Sex: Male
  Weight: 71.4 kg

DRUGS (3)
  1. CEFTRIAXONE [Concomitant]
  2. LEVAQUIN [Concomitant]
  3. EXJADE [Suspect]
     Indication: IRON OVERLOAD
     Dosage: 2500 MG, QD
     Route: 048
     Dates: start: 20090528

REACTIONS (3)
  - PNEUMONIA [None]
  - COUGH [None]
  - CHEST PAIN [None]
